FAERS Safety Report 21965849 (Version 5)
Quarter: 2023Q1

REPORT INFORMATION
  Report Type: Report from Study
  Country: AT (occurrence: AT)
  Receive Date: 20230208
  Receipt Date: 20230220
  Transmission Date: 20230418
  Serious: Yes (Hospitalization)
  Sender: FDA-Public Use
  Company Number: AT-ABBVIE-4298310

PATIENT
  Age: 65 Year
  Sex: Male

DRUGS (2)
  1. CARBIDOPA\LEVODOPA [Suspect]
     Active Substance: CARBIDOPA\LEVODOPA
     Indication: Parkinson^s disease
     Dosage: MD: 7,0ML; CR DAYTIME: 3,5ML/H; ED: 2,0 ML?16H THERAPY
     Route: 050
     Dates: start: 20180523
  2. CARBIDOPA\LEVODOPA [Suspect]
     Active Substance: CARBIDOPA\LEVODOPA
     Dosage: CURRENT DOSE: MD 7,0 ML, CR 5,0 ML, ED 2,0 ML
     Route: 050

REACTIONS (11)
  - General physical health deterioration [Not Recovered/Not Resolved]
  - Akinesia [Recovering/Resolving]
  - General physical health deterioration [Recovered/Resolved]
  - Asthenia [Not Recovered/Not Resolved]
  - Pyrexia [Not Recovered/Not Resolved]
  - On and off phenomenon [Recovering/Resolving]
  - Device use issue [Recovered/Resolved]
  - Parenteral nutrition [Not Recovered/Not Resolved]
  - Dysphagia [Not Recovered/Not Resolved]
  - Cholecystitis [Recovering/Resolving]
  - Device breakage [Unknown]

NARRATIVE: CASE EVENT DATE: 20230201
